FAERS Safety Report 7485753-0 (Version None)
Quarter: 2011Q2

REPORT INFORMATION
  Report Type: 
  Country: None (occurrence: None)
  Receive Date: 20110517
  Receipt Date: 20091226
  Transmission Date: 20111010
  Serious: Yes (Hospitalization, Other)
  Sender: FDA-Public Use
  Company Number: US-BAYER-200943328NA

PATIENT
  Age: 55 Year
  Sex: Male
  Weight: 105 kg

DRUGS (12)
  1. ANCEF [Concomitant]
  2. LOVENOX [Concomitant]
  3. MORPHINE [Concomitant]
  4. TYLENOL (CAPLET) [Concomitant]
     Dosage: UNK
     Dates: start: 20050101
  5. TOPROL-XL [Concomitant]
     Indication: HYPERTENSION
     Dosage: UNK
     Dates: start: 19800101
  6. PENICILLIN [Concomitant]
  7. ACETYLSALICYLIC ACID SRT [Concomitant]
  8. ETOMIDATE [Concomitant]
  9. TRASYLOL [Suspect]
     Indication: CORONARY ARTERY BYPASS
     Route: 042
     Dates: start: 20060801
  10. PLAVIX [Concomitant]
  11. NITROGLYCERIN [Concomitant]
  12. HEPARIN [Concomitant]

REACTIONS (7)
  - NEUROPATHY PERIPHERAL [None]
  - INJURY [None]
  - RENAL FAILURE [None]
  - DEPRESSION [None]
  - RENAL FAILURE ACUTE [None]
  - PAIN [None]
  - UNEVALUABLE EVENT [None]
